FAERS Safety Report 17902452 (Version 1)
Quarter: 2020Q2

REPORT INFORMATION
  Report Type: Report from Study
  Country: MX (occurrence: MX)
  Receive Date: 20200616
  Receipt Date: 20200616
  Transmission Date: 20200714
  Serious: Yes (Other)
  Sender: FDA-Public Use
  Company Number: NVSC2020MX165690

PATIENT
  Sex: Male
  Weight: 95 kg

DRUGS (2)
  1. ENTRESTO [Suspect]
     Active Substance: SACUBITRIL\VALSARTAN
     Indication: CARDIAC DISORDER
     Dosage: 1 DF, BID. 3 YEARS AGO
     Route: 048
  2. GALVUS MET [Suspect]
     Active Substance: METFORMIN HYDROCHLORIDE\VILDAGLIPTIN
     Indication: DIABETES MELLITUS
     Dosage: 1 DF, BID, (STARTED APPROXIMATELY 3 YEARS AGO)
     Route: 048

REACTIONS (4)
  - Salmonellosis [Recovering/Resolving]
  - Malaise [Unknown]
  - Proteus infection [Recovering/Resolving]
  - Off label use [Unknown]
